FAERS Safety Report 17314214 (Version 2)
Quarter: 2020Q1

REPORT INFORMATION
  Report Type: Spontaneous
  Country: US (occurrence: US)
  Receive Date: 20200124
  Receipt Date: 20200221
  Transmission Date: 20200409
  Serious: Yes (Other)
  Sender: FDA-Public Use
  Company Number: US-BAYER-2020-012545

PATIENT
  Age: 48 Year
  Sex: Female

DRUGS (1)
  1. MIRENA [Suspect]
     Active Substance: LEVONORGESTREL
     Indication: CONTRACEPTION
     Dosage: 20 MCG/24HR, CONT
     Route: 015
     Dates: start: 20180328, end: 20200113

REACTIONS (9)
  - Uterine leiomyoma [None]
  - Perineal pain [None]
  - Genital haemorrhage [None]
  - Haemorrhagic ovarian cyst [None]
  - Abdominal pain lower [None]
  - Ovarian cyst [None]
  - Pelvic pain [None]
  - Device dislocation [Recovered/Resolved]
  - Menorrhagia [None]

NARRATIVE: CASE EVENT DATE: 201912
